FAERS Safety Report 7932680-8 (Version None)
Quarter: 2011Q4

REPORT INFORMATION
  Report Type: 
  Country: None (occurrence: None)
  Receive Date: 20111122
  Receipt Date: 20111114
  Transmission Date: 20120403
  Serious: Yes (Life-Threatening, Other)
  Sender: FDA-Public Use
  Company Number: US-JNJFOC-20111009473

PATIENT
  Sex: Male
  Weight: 90.72 kg

DRUGS (4)
  1. COLAZAL [Concomitant]
     Indication: COLITIS ULCERATIVE
     Dosage: THREE TIMES DAILY
     Route: 048
  2. CANASA [Concomitant]
     Indication: COLITIS ULCERATIVE
     Route: 054
  3. REMICADE [Suspect]
     Indication: COLITIS ULCERATIVE
     Route: 042
     Dates: start: 20100401, end: 20100101
  4. REMICADE [Suspect]
     Route: 042
     Dates: start: 20100101

REACTIONS (6)
  - THERAPEUTIC RESPONSE DECREASED [None]
  - ABNORMAL SENSATION IN EYE [None]
  - OPTIC NERVE INJURY [None]
  - EXOPHTHALMOS [None]
  - EYELID FUNCTION DISORDER [None]
  - FEELING DRUNK [None]
